FAERS Safety Report 9105445 (Version 2)
Quarter: 2013Q2

REPORT INFORMATION
  Report Type: Spontaneous
  Country: US (occurrence: US)
  Receive Date: 20130220
  Receipt Date: 20130404
  Transmission Date: 20140414
  Serious: Yes (Other)
  Sender: FDA-Public Use
  Company Number: US-PFIZER INC-2013061630

PATIENT
  Age: 63 Year
  Sex: Female

DRUGS (5)
  1. SOMAVERT [Suspect]
     Indication: ACROMEGALY
     Dosage: 15 MG, 2X/WEEK
  2. ENBREL [Concomitant]
     Indication: RHEUMATOID ARTHRITIS
     Dosage: 25 MG, 2X/WEEK
  3. PREDNISONE [Concomitant]
     Dosage: 5 MG, 1X/DAY
  4. PLAQUENIL [Concomitant]
     Dosage: 100 MG, 1X/DAY
  5. CELEBREX [Concomitant]
     Dosage: 100 MG, AS NEEDED

REACTIONS (1)
  - Myasthenia gravis [Not Recovered/Not Resolved]
